FAERS Safety Report 10581316 (Version 1)
Quarter: 2014Q4

REPORT INFORMATION
  Report Type: Report from Study
  Country: US (occurrence: US)
  Receive Date: 20141113
  Receipt Date: 20141113
  Transmission Date: 20150529
  Serious: Yes (Other)
  Sender: FDA-Public Use
  Company Number: PHEH2014US022415

PATIENT
  Sex: Male

DRUGS (1)
  1. TOBI [Suspect]
     Active Substance: TOBRAMYCIN
     Indication: TRACHEITIS
     Dosage: 300 MG/ 5 ML (AMP 56/PK) BID (28 DAYS ON AND 28 DAYS OFF)
     Route: 055
     Dates: start: 20131130

REACTIONS (1)
  - Pseudomonas infection [Unknown]
